FAERS Safety Report 17188592 (Version 1)
Quarter: 2019Q4

REPORT INFORMATION
  Report Type: Spontaneous
  Country: US (occurrence: US)
  Receive Date: 20191222
  Receipt Date: 20191222
  Transmission Date: 20200122
  Serious: No
  Sender: FDA-Public Use
  Company Number: US-ACORDA-ACO_161629_2019

PATIENT
  Age: 36 Year
  Sex: Female

DRUGS (1)
  1. INBRIJA [Suspect]
     Active Substance: LEVODOPA
     Indication: PARKINSON^S DISEASE
     Dosage: 84 MILLIGRAM, PRN
     Dates: start: 20190829

REACTIONS (6)
  - Blepharospasm [Unknown]
  - Epistaxis [Unknown]
  - Nasal discharge discolouration [Unknown]
  - Sjogren^s syndrome [Unknown]
  - Rhinorrhoea [Unknown]
  - Vaginal discharge [Unknown]

NARRATIVE: CASE EVENT DATE: 20191011
